FAERS Safety Report 21458919 (Version 1)
Quarter: 2022Q4

REPORT INFORMATION
  Report Type: Report from Study
  Country: US (occurrence: US)
  Receive Date: 20221014
  Receipt Date: 20221014
  Transmission Date: 20230113
  Serious: Yes (Hospitalization)
  Sender: FDA-Public Use
  Company Number: US-ABBVIE-4145396

PATIENT
  Age: 29 Year
  Sex: Male
  Weight: 142.88 kg

DRUGS (21)
  1. UPADACITINIB [Suspect]
     Active Substance: UPADACITINIB
     Indication: Crohn^s disease
     Route: 048
     Dates: start: 20200913, end: 20210819
  2. UPADACITINIB [Suspect]
     Active Substance: UPADACITINIB
     Indication: Crohn^s disease
     Route: 048
     Dates: start: 20220927, end: 20221005
  3. ACETAMINOPHEN [Concomitant]
     Active Substance: ACETAMINOPHEN
     Indication: Hand-foot-and-mouth disease
     Dosage: TIME INTERVAL: AS NECESSARY
     Route: 048
     Dates: start: 2004
  4. ACETAMINOPHEN [Concomitant]
     Active Substance: ACETAMINOPHEN
     Indication: Hand-foot-and-mouth disease
     Dosage: TIME INTERVAL: AS NECESSARY
     Route: 048
     Dates: start: 20220929, end: 20220929
  5. ACETAMINOPHEN [Concomitant]
     Active Substance: ACETAMINOPHEN
     Indication: Hand-foot-and-mouth disease
     Dosage: TIME INTERVAL: AS NECESSARY
     Route: 048
     Dates: start: 20221007, end: 20221007
  6. CALAMINE [Concomitant]
     Active Substance: CALAMINE\FERRIC OXIDE RED\ZINC OXIDE
     Indication: Exposure to toxic agent
     Dosage: TIME INTERVAL: AS NECESSARY: 1 APPLICATION
     Route: 061
     Dates: start: 20220913, end: 20221001
  7. ZINC OXIDE [Concomitant]
     Active Substance: ZINC OXIDE
     Indication: Exposure to toxic agent
     Dosage: TIME INTERVAL: AS NECESSARY: 1 APPLICATION
     Route: 061
     Dates: start: 20220913, end: 20221001
  8. NOVOLOG [Concomitant]
     Active Substance: INSULIN ASPART
     Indication: Type 2 diabetes mellitus
     Dosage: TIME INTERVAL: 0.33333333 DAYS: SLIDING SCALE
     Route: 058
     Dates: start: 20220928
  9. DILTIAZEM CREAM [Concomitant]
     Indication: Anal fissure
     Dosage: TIME INTERVAL: AS NECESSARY
     Route: 061
     Dates: start: 20181207
  10. LISINOPRIL [Concomitant]
     Active Substance: LISINOPRIL
     Indication: Essential hypertension
     Route: 048
     Dates: start: 20220602
  11. NOVOLIN N [Concomitant]
     Active Substance: INSULIN HUMAN
     Indication: Type 2 diabetes mellitus
     Route: 058
     Dates: start: 20220929
  12. TUCKS PADS [Concomitant]
     Indication: Haemorrhoids
     Dosage: TIME INTERVAL: AS NECESSARY: 1 PAD
     Route: 061
     Dates: start: 20160701
  13. ADDERALL [Concomitant]
     Active Substance: AMPHETAMINE ASPARTATE\AMPHETAMINE SULFATE\DEXTROAMPHETAMINE SACCHARATE\DEXTROAMPHETAMINE SULFATE
     Indication: Attention deficit hyperactivity disorder
     Route: 048
     Dates: start: 20160505
  14. VITAMIN E [Concomitant]
     Active Substance: .ALPHA.-TOCOPHEROL
     Indication: Non-alcoholic steatohepatitis
     Route: 048
     Dates: start: 20190729
  15. VITAMIN E [Concomitant]
     Active Substance: .ALPHA.-TOCOPHEROL
     Indication: Non-alcoholic steatohepatitis
     Route: 048
     Dates: start: 20221007, end: 20221008
  16. PRILOSEC [Concomitant]
     Active Substance: OMEPRAZOLE MAGNESIUM
     Indication: Crohn^s disease
     Route: 048
     Dates: start: 20220616
  17. LEVEMIR [Concomitant]
     Active Substance: INSULIN DETEMIR
     Indication: Type 2 diabetes mellitus
     Dosage: 20 UNITS
     Route: 058
     Dates: start: 20220928
  18. FIORICET [Concomitant]
     Active Substance: ACETAMINOPHEN\BUTALBITAL\CAFFEINE
     Indication: Headache
     Dosage: TIME INTERVAL: TOTAL: 2
     Route: 048
     Dates: start: 20220928, end: 20220928
  19. HUMULIN R [Concomitant]
     Active Substance: INSULIN HUMAN
     Indication: Type 2 diabetes mellitus
     Dosage: TIME INTERVAL: TOTAL: 7 UNITS
     Dates: start: 20220928, end: 20220928
  20. SODIUM CHLORIDE WITH POTASSIUM [Concomitant]
     Indication: Type 2 diabetes mellitus
     Dosage: TIME INTERVAL: TOTAL
     Route: 042
     Dates: start: 20220928, end: 20220928
  21. LIPITOR [Concomitant]
     Active Substance: ATORVASTATIN CALCIUM
     Indication: Hypercholesterolaemia
     Route: 048
     Dates: start: 20221006, end: 20221006

REACTIONS (1)
  - Hepatic enzyme increased [Not Recovered/Not Resolved]

NARRATIVE: CASE EVENT DATE: 20221005
